FAERS Safety Report 16383543 (Version 1)
Quarter: 2019Q2

REPORT INFORMATION
  Report Type: Spontaneous
  Country: US (occurrence: US)
  Receive Date: 20190517
  Receipt Date: 20190517
  Transmission Date: 20190711
  Serious: Yes (Hospitalization)
  Sender: FDA-Public Use
  Company Number: None

PATIENT
  Age: 73 Year
  Sex: Female

DRUGS (4)
  1. BOSULIF [Suspect]
     Active Substance: BOSUTINIB MONOHYDRATE
     Indication: MYELOID LEUKAEMIA
     Route: 048
     Dates: start: 20190202
  2. MULTIVITAMIN [Concomitant]
     Active Substance: VITAMINS
     Dates: start: 20190129
  3. FISH OIL [Concomitant]
     Active Substance: FISH OIL
     Dates: start: 20190129
  4. FLAX SEED [Concomitant]
     Active Substance: FLAX SEED
     Dates: start: 20190129

REACTIONS (2)
  - Blood pressure abnormal [None]
  - Amnesia [None]

NARRATIVE: CASE EVENT DATE: 20190422
